FAERS Safety Report 15074230 (Version 1)
Quarter: 2018Q2

REPORT INFORMATION
  Report Type: Spontaneous
  Country: US (occurrence: US)
  Receive Date: 20180627
  Receipt Date: 20180627
  Transmission Date: 20180711
  Serious: No
  Sender: FDA-Public Use
  Company Number: US-TEVA-2018-US-914097

PATIENT
  Age: 43 Year
  Sex: Male

DRUGS (1)
  1. LAMOTRIGINE. [Suspect]
     Active Substance: LAMOTRIGINE
     Indication: BIPOLAR DISORDER
     Dosage: TAKING 2.5 TABLETS PER DAY
     Route: 065
     Dates: start: 201801, end: 201805

REACTIONS (1)
  - Incorrect dose administered [Not Recovered/Not Resolved]
